FAERS Safety Report 14625994 (Version 5)
Quarter: 2018Q2

REPORT INFORMATION
  Report Type: Spontaneous
  Country: NL (occurrence: NL)
  Receive Date: 20180312
  Receipt Date: 20180507
  Transmission Date: 20180711
  Serious: Yes (Other)
  Sender: FDA-Public Use
  Company Number: NL-LPDUSPRD-20180285

PATIENT
  Age: 81 Year
  Sex: Male
  Weight: 89 kg

DRUGS (10)
  1. ENALAPRIL [Concomitant]
     Active Substance: ENALAPRIL
     Dosage: 5 MG (5 MG, 1 IN 1 D)
     Route: 048
     Dates: start: 20180303
  2. CARBASALATE CALCIUM [Concomitant]
     Active Substance: CARBASPIRIN
     Dosage: 100 MG (100 MG, 1 IN 1 D)
     Route: 048
     Dates: start: 20180303
  3. ALFACALCIDOL [Concomitant]
     Active Substance: ALFACALCIDOL
     Dosage: 1DD1 (0.25 MCG,1 IN 1 D)
     Route: 048
     Dates: start: 20180303
  4. FERINJECT [Suspect]
     Active Substance: FERRIC CARBOXYMALTOSE
     Dosage: 1000 MG, 1 TOTAL
     Route: 041
     Dates: start: 20170815, end: 20170815
  5. FOSFAATDRANK [Concomitant]
     Dosage: UNKNOWN
     Route: 048
  6. OMEPRAZOLE. [Concomitant]
     Active Substance: OMEPRAZOLE
     Dosage: 20 MG (20 MG, 1 IN 1 D)
     Route: 048
     Dates: start: 20180303
  7. LACTULOSE. [Concomitant]
     Active Substance: LACTULOSE
     Dosage: 30 MG (30 ML, 1 IN 1 D)
     Route: 048
     Dates: start: 20180303
  8. METOPROLOL SUCCINATE. [Concomitant]
     Active Substance: METOPROLOL SUCCINATE
     Dosage: 50 MG (50 MG, 1 IN 1 D)
     Route: 048
     Dates: start: 20180303
  9. NIFEDIPINE. [Concomitant]
     Active Substance: NIFEDIPINE
     Dosage: 30 MG, 1 IN 2D
     Route: 048
     Dates: start: 20180303
  10. SODIUM PHOSPHATE [Concomitant]
     Active Substance: SODIUM PHOSPHATE
     Dosage: 2DD 20ML (20 ML,1 IN 1 D)
     Route: 065

REACTIONS (2)
  - Hypophosphataemia [Recovered/Resolved]
  - Respiratory tract infection [Unknown]

NARRATIVE: CASE EVENT DATE: 201802
